FAERS Safety Report 8837187 (Version 1)
Quarter: 2012Q4

REPORT INFORMATION
  Report Type: 
  Country: EG (occurrence: EG)
  Receive Date: 20121012
  Receipt Date: 20121012
  Transmission Date: 20130627
  Serious: Yes (Hospitalization)
  Sender: FDA-Public Use
  Company Number: EG-SANOFI-AVENTIS-2012SA074330

PATIENT
  Age: 39 Year
  Sex: Female

DRUGS (2)
  1. CLIKSTAR [Suspect]
     Indication: DEVICE THERAPY
     Dates: start: 20110503
  2. LANTUS [Suspect]
     Indication: TYPE II DIABETES MELLITUS
     Dosage: 20u which was titrated to 25 u
     Route: 058
     Dates: start: 20110503

REACTIONS (2)
  - Ketoacidosis [Unknown]
  - Hyperglycaemia [Recovered/Resolved]
